FAERS Safety Report 19875259 (Version 1)
Quarter: 2021Q3

REPORT INFORMATION
  Report Type: Spontaneous
  Country: GB (occurrence: GB)
  Receive Date: 20210924
  Receipt Date: 20210924
  Transmission Date: 20211014
  Serious: Yes (Hospitalization, Other)
  Sender: FDA-Public Use
  Company Number: GB-CELLTRION INC.-2021GB013023

PATIENT

DRUGS (7)
  1. INFLIXIMAB PFIZER (UNKNOWN) [Suspect]
     Active Substance: INFLIXIMAB
     Indication: COLITIS ULCERATIVE
     Dosage: 10 MG/KG X2
     Dates: start: 202010
  2. INFLIXIMAB PFIZER (UNKNOWN) [Suspect]
     Active Substance: INFLIXIMAB
     Dosage: UNK
     Route: 058
     Dates: start: 20201229
  3. AZATHIOPRINE. [Concomitant]
     Active Substance: AZATHIOPRINE
     Dosage: 75 MG, 1X/DAY
  4. PREDNISOLONE. [Concomitant]
     Active Substance: PREDNISOLONE
     Dosage: 15 MG, 1X/DAY
  5. INFLIXIMAB PFIZER (UNKNOWN) [Suspect]
     Active Substance: INFLIXIMAB
     Dosage: AN EXTRA DOSE (DOSE 4)
     Route: 042
     Dates: start: 20201229
  6. 5?ASA [Concomitant]
     Active Substance: MESALAMINE
     Dosage: UNK
     Dates: end: 20201207
  7. 5?ASA [Concomitant]
     Active Substance: MESALAMINE
     Dosage: UNK
     Dates: start: 20201229

REACTIONS (11)
  - C-reactive protein increased [Recovered/Resolved]
  - Faecal calprotectin increased [Recovered/Resolved]
  - Resting tremor [Unknown]
  - Colitis ulcerative [Unknown]
  - Asthenia [Recovering/Resolving]
  - Product use issue [Unknown]
  - Stress [Unknown]
  - Pyrexia [Recovered/Resolved]
  - Hyperhidrosis [Recovered/Resolved]
  - Extra dose administered [Unknown]
  - Off label use [Unknown]

NARRATIVE: CASE EVENT DATE: 202010
